FAERS Safety Report 10005482 (Version 2)
Quarter: 2014Q2

REPORT INFORMATION
  Report Type: Spontaneous
  Country: CN (occurrence: CN)
  Receive Date: 20140312
  Receipt Date: 20140630
  Transmission Date: 20141212
  Serious: Yes (Other)
  Sender: FDA-Public Use
  Company Number: CN-ELI_LILLY_AND_COMPANY-CN201403002460

PATIENT
  Age: 52 Year
  Sex: Female

DRUGS (2)
  1. HUMALOG 50% LISPRO, 50% NPL [Suspect]
     Indication: DIABETES MELLITUS
     Dosage: 16 DF, BID
     Route: 065
  2. METFORMIN [Concomitant]

REACTIONS (2)
  - Renal disorder [Unknown]
  - Oedema [Unknown]
